FAERS Safety Report 6417603-5 (Version None)
Quarter: 2009Q4

REPORT INFORMATION
  Report Type: 
  Country: None (occurrence: None)
  Receive Date: 20091023
  Receipt Date: 20091013
  Transmission Date: 20100525
  Serious: Yes (Death, Life-Threatening, Hospitalization, Disabling)
  Sender: FDA-Public Use
  Company Number: ADR37612009

PATIENT
  Sex: Female

DRUGS (9)
  1. SIMVASTATIN [Suspect]
     Dosage: 40 MG, ORAL
     Route: 048
  2. ERYTHROMYCIN [Concomitant]
  3. AMITRIPTYLINE [Concomitant]
  4. BUMETANIDE [Concomitant]
  5. DIHYDROCODEINE BITARTRATE INJ [Concomitant]
  6. LISINOPRIL [Concomitant]
  7. METFORMIN [Concomitant]
  8. ROSIGLITAZONE [Concomitant]
  9. LEVOTHYROXINE SODIUM [Concomitant]

REACTIONS (7)
  - CHRONIC OBSTRUCTIVE PULMONARY DISEASE [None]
  - DECUBITUS ULCER [None]
  - RENAL FAILURE ACUTE [None]
  - RHABDOMYOLYSIS [None]
  - SEPSIS [None]
  - SKIN NECROSIS [None]
  - SKIN ULCER [None]
